FAERS Safety Report 17032912 (Version 1)
Quarter: 2019Q4

REPORT INFORMATION
  Report Type: Spontaneous
  Country: US (occurrence: US)
  Receive Date: 20191114
  Receipt Date: 20191114
  Transmission Date: 20200122
  Serious: No
  Sender: FDA-Public Use
  Company Number: US-TEVA-2019-US-1136520

PATIENT
  Sex: Female

DRUGS (2)
  1. CLONAZEPAM TABLET TEVA [Suspect]
     Active Substance: CLONAZEPAM
     Indication: TINNITUS
     Route: 065
  2. CLONAZEPAM TABLET TEVA [Suspect]
     Active Substance: CLONAZEPAM
     Indication: PAIN

REACTIONS (3)
  - Dizziness [Unknown]
  - Feeling abnormal [Unknown]
  - Adverse event [Unknown]
